FAERS Safety Report 18501334 (Version 1)
Quarter: 2020Q4

REPORT INFORMATION
  Report Type: Report from Study
  Country: FR (occurrence: FR)
  Receive Date: 20201113
  Receipt Date: 20201113
  Transmission Date: 20210114
  Serious: Yes (Death)
  Sender: FDA-Public Use
  Company Number: FR-PFIZER INC-2020444518

PATIENT
  Age: 79 Year
  Sex: Male

DRUGS (53)
  1. ACITRETIN. [Suspect]
     Active Substance: ACITRETIN
     Dosage: 15 MG, DAILY
     Route: 048
     Dates: start: 20070116, end: 2007
  2. NOVONORM [Concomitant]
     Active Substance: REPAGLINIDE
  3. FUROSEMIDE. [Concomitant]
     Active Substance: FUROSEMIDE
     Dosage: UNK
  4. METHOTREXATE SODIUM. [Suspect]
     Active Substance: METHOTREXATE SODIUM
     Dosage: 35 MG, WEEKLY
     Route: 048
     Dates: start: 200002, end: 200011
  5. ACITRETIN. [Suspect]
     Active Substance: ACITRETIN
     Indication: PSORIASIS
     Dosage: 25 MG, DAILY
     Route: 048
     Dates: start: 19981125, end: 200109
  6. ACITRETIN. [Suspect]
     Active Substance: ACITRETIN
     Dosage: 20 MG, DAILY
     Route: 048
     Dates: start: 20031230, end: 20040316
  7. ACITRETIN. [Suspect]
     Active Substance: ACITRETIN
     Dosage: 10 MG, DAILY
     Route: 048
     Dates: start: 20131021, end: 20140331
  8. ATORVASTATIN [Concomitant]
     Active Substance: ATORVASTATIN
     Dosage: UNK
  9. CICAPLAST [Concomitant]
     Dosage: UNK
  10. HUMALOG [Concomitant]
     Active Substance: INSULIN LISPRO
     Dosage: UNK
  11. PERINDOPRIL/INDAPAMIDE KRKA [Concomitant]
     Dosage: UNK
  12. VASELINE [PARAFFIN SOFT] [Concomitant]
     Dosage: UNK
     Dates: start: 20181210
  13. METHOTREXATE SODIUM. [Suspect]
     Active Substance: METHOTREXATE SODIUM
     Dosage: 20 MG, WEEKLY
     Route: 048
     Dates: start: 200606, end: 20120903
  14. ACITRETIN. [Suspect]
     Active Substance: ACITRETIN
     Dosage: 20 MG, DAILY
     Route: 048
     Dates: start: 200501, end: 20070116
  15. ACITRETIN. [Suspect]
     Active Substance: ACITRETIN
     Dosage: 10 MG, DAILY
     Route: 048
     Dates: start: 20181210
  16. CICLOSPORIN [Suspect]
     Active Substance: CYCLOSPORINE
     Dosage: 175 MG, DAILY
     Route: 048
     Dates: start: 200112, end: 2002
  17. KARDEGIC [Concomitant]
     Active Substance: ASPIRIN DL-LYSINE
     Dosage: UNK
  18. LEVOTHYROX [Concomitant]
     Active Substance: LEVOTHYROXINE
     Dosage: UNK
  19. DIFFU K [Concomitant]
     Active Substance: POTASSIUM CHLORIDE
     Dosage: UNK
  20. TARDYFERON [Concomitant]
     Active Substance: FERROUS SULFATE
     Dosage: UNK
  21. NO SUBJECT DRUG [Suspect]
     Active Substance: UNSPECIFIED INGREDIENT
     Dosage: NO DOSE GIVEN
  22. METHOTREXATE SODIUM. [Suspect]
     Active Substance: METHOTREXATE SODIUM
     Dosage: 17.5 MG, WEEKLY
     Dates: start: 200510, end: 20060131
  23. METHOTREXATE SODIUM. [Suspect]
     Active Substance: METHOTREXATE SODIUM
     Dosage: 15 MG, WEEKLY
     Dates: start: 200601, end: 20060620
  24. METHOTREXATE SODIUM. [Suspect]
     Active Substance: METHOTREXATE SODIUM
     Dosage: 5 MG, WEEKLY
     Route: 048
     Dates: start: 20180319
  25. ACITRETIN. [Suspect]
     Active Substance: ACITRETIN
     Dosage: 20 MG, DAILY
     Route: 048
     Dates: start: 2007, end: 20131021
  26. ACITRETIN. [Suspect]
     Active Substance: ACITRETIN
     Dosage: 10 MG, DAILY
     Route: 048
     Dates: start: 2016, end: 201704
  27. CICLOSPORIN [Suspect]
     Active Substance: CYCLOSPORINE
     Indication: PSORIASIS
     Dosage: 65 MG, 2X/DAY
     Route: 048
     Dates: start: 20001117, end: 20001211
  28. CICLOSPORIN [Suspect]
     Active Substance: CYCLOSPORINE
     Dosage: 65 MG, DAILY
     Route: 048
     Dates: start: 200107, end: 200109
  29. CICLOSPORIN [Suspect]
     Active Substance: CYCLOSPORINE
     Dosage: 110 MG, 2X/DAY
     Route: 048
     Dates: start: 200109, end: 20010926
  30. CICLOSPORIN [Suspect]
     Active Substance: CYCLOSPORINE
     Dosage: 100 MG, 2X/DAY
     Route: 048
     Dates: start: 200109, end: 200112
  31. CICLOSPORIN [Suspect]
     Active Substance: CYCLOSPORINE
     Dosage: 125 MG, DAILY
     Route: 048
     Dates: start: 200205, end: 200208
  32. DEXERYL [GLYCEROL;PARAFFIN, LIQUID;WHITE SOFT PARAFFIN] [Concomitant]
     Active Substance: GLYCERIN\MINERAL OIL\PETROLATUM
     Dosage: UNK
     Dates: start: 20150330
  33. MOVICOL [Concomitant]
     Active Substance: POLYETHYLENE GLYCOL 3350\POTASSIUM CHLORIDE\SODIUM BICARBONATE\SODIUM CHLORIDE
     Dosage: UNK
  34. METHOTREXATE SODIUM. [Suspect]
     Active Substance: METHOTREXATE SODIUM
     Dosage: 20 MG, WEEKLY
     Route: 048
     Dates: start: 20050308, end: 20051011
  35. METHOTREXATE SODIUM. [Suspect]
     Active Substance: METHOTREXATE SODIUM
     Dosage: 15 MG, WEEKLY
     Route: 048
     Dates: start: 20120903, end: 20130719
  36. METHOTREXATE SODIUM. [Suspect]
     Active Substance: METHOTREXATE SODIUM
     Dosage: 7.5 MG, WEEKLY
     Route: 048
     Dates: start: 20130719, end: 20180319
  37. ACITRETIN. [Suspect]
     Active Substance: ACITRETIN
     Dosage: 20 MG, DAILY
     Route: 048
     Dates: start: 201704, end: 20181210
  38. ACITRETIN. [Suspect]
     Active Substance: ACITRETIN
     Dosage: 30 MG, DAILY
     Route: 048
     Dates: start: 200109, end: 20031230
  39. ACITRETIN. [Suspect]
     Active Substance: ACITRETIN
     Dosage: 25 MG, DAILY
     Route: 048
     Dates: start: 200403, end: 20050111
  40. CICLOSPORIN [Suspect]
     Active Substance: CYCLOSPORINE
     Dosage: 50 MG, 2X/DAY
     Route: 048
     Dates: start: 200212, end: 20030128
  41. MUPIROCIN. [Concomitant]
     Active Substance: MUPIROCIN
     Dosage: UNK
     Dates: start: 20150330
  42. RAMIPRIL. [Concomitant]
     Active Substance: RAMIPRIL
     Dosage: UNK
  43. ACITRETIN. [Suspect]
     Active Substance: ACITRETIN
     Dosage: 20 MG, DAILY
     Route: 048
     Dates: start: 20140331, end: 2016
  44. CICLOSPORIN [Suspect]
     Active Substance: CYCLOSPORINE
     Dosage: 75 MG, 2X/DAY
     Route: 048
     Dates: start: 200012, end: 200107
  45. CICLOSPORIN [Suspect]
     Active Substance: CYCLOSPORINE
     Dosage: 25 MG, 2X/DAY
     Route: 048
     Dates: start: 200301, end: 20030304
  46. UN ALFA [Concomitant]
     Active Substance: ALFACALCIDOL
     Dosage: UNK
  47. PERMIXON [Concomitant]
     Active Substance: HERBALS\SAW PALMETTO
     Dosage: UNK
  48. CALCIDOSE [CALCIUM CARBONATE] [Concomitant]
     Active Substance: CALCIUM CARBONATE
  49. PANTOPRAZOLE [Concomitant]
     Active Substance: PANTOPRAZOLE
     Dosage: UNK
  50. IMPORTAL [Concomitant]
     Active Substance: LACTITOL
     Dosage: UNK
  51. METHOTREXATE SODIUM. [Suspect]
     Active Substance: METHOTREXATE SODIUM
     Indication: PSORIASIS
     Dosage: 25 MG, WEEKLY
     Route: 048
     Dates: start: 199910, end: 20000204
  52. CICLOSPORIN [Suspect]
     Active Substance: CYCLOSPORINE
     Dosage: 75 MG, 2X/DAY
     Route: 048
     Dates: start: 2002, end: 20021224
  53. INSULIN GLARGINE [Concomitant]
     Active Substance: INSULIN GLARGINE
     Dosage: UNK

REACTIONS (1)
  - COVID-19 [Fatal]

NARRATIVE: CASE EVENT DATE: 20201025
